FAERS Safety Report 5330595-5 (Version None)
Quarter: 2007Q2

REPORT INFORMATION
  Report Type: 
  Country: None (occurrence: None)
  Receive Date: 20070516
  Receipt Date: 20070504
  Transmission Date: 20071010
  Serious: Yes (Hospitalization)
  Sender: FDA-Public Use
  Company Number: GXKR2007JP04065

PATIENT
  Age: 57 Year
  Sex: Female

DRUGS (4)
  1. AZATHIOPRINE [Suspect]
     Indication: CROHN'S DISEASE
     Dosage: 50 MG/DAY, ORAL
     Route: 048
  2. PREDNISOLONE [Suspect]
     Indication: CROHN'S DISEASE
     Dosage: 25 MG/DAY, ORAL
     Route: 048
  3. INFLIXIMAB(INFLIXIMAB) UNKNOWN [Suspect]
     Indication: CROHN'S DISEASE
     Dosage: 5 MG/KG, QW, INFUSION
     Dates: start: 20041006
  4. MESALAMINE [Concomitant]

REACTIONS (5)
  - DRUG INEFFECTIVE [None]
  - HAEMATOCHEZIA [None]
  - LEUKOPENIA [None]
  - PNEUMOCYSTIS JIROVECI PNEUMONIA [None]
  - PNEUMOTHORAX [None]
